FAERS Safety Report 5326675-0 (Version None)
Quarter: 2007Q2

REPORT INFORMATION
  Report Type: 
  Country: None (occurrence: None)
  Receive Date: 20070516
  Receipt Date: 20070504
  Transmission Date: 20071010
  Serious: Yes (Other)
  Sender: FDA-Public Use
  Company Number: US-PFIZER INC-2006047173

PATIENT
  Sex: Male
  Weight: 79.4 kg

DRUGS (11)
  1. VIAGRA [Suspect]
     Indication: ERECTILE DYSFUNCTION
     Dates: start: 19950101, end: 20050301
  2. ZOCOR [Concomitant]
  3. VITAPLEX [Concomitant]
  4. PREDNISONE TAB [Concomitant]
  5. METHOTREXATE [Concomitant]
  6. RELAFEN [Concomitant]
     Dates: start: 20000901
  7. EFFEXOR [Concomitant]
     Dates: start: 20000101
  8. DITROPAN [Concomitant]
     Dates: start: 20010401
  9. CELEBREX [Concomitant]
     Dates: start: 20030801, end: 20040901
  10. TYLENOL [Concomitant]
  11. ASPIRIN [Concomitant]

REACTIONS (2)
  - BLINDNESS UNILATERAL [None]
  - OPTIC ISCHAEMIC NEUROPATHY [None]
